FAERS Safety Report 6009895-1 (Version None)
Quarter: 2008Q4

REPORT INFORMATION
  Report Type: 
  Country: None (occurrence: None)
  Receive Date: 20081218
  Receipt Date: 20081211
  Transmission Date: 20090506
  Serious: Yes (Hospitalization)
  Sender: FDA-Public Use
  Company Number: US-RANBAXY-2008RR-19891

PATIENT
  Age: 32 Year
  Sex: Male

DRUGS (2)
  1. ACETAMINOPHEN [Suspect]
     Indication: INTENTIONAL OVERDOSE
     Dosage: 48 G, UNK
     Route: 048
  2. DIPHENHYDRAMINE HCL [Concomitant]
     Route: 048

REACTIONS (3)
  - LIVER INJURY [None]
  - OVERDOSE [None]
  - RENAL IMPAIRMENT [None]
